FAERS Safety Report 5507829-7 (Version None)
Quarter: 2007Q4

REPORT INFORMATION
  Report Type: 
  Country: None (occurrence: None)
  Receive Date: 20071106
  Receipt Date: 20071024
  Transmission Date: 20080405
  Serious: Yes (Other)
  Sender: FDA-Public Use
  Company Number: US-ELI_LILLY_AND_COMPANY-US200710006930

PATIENT
  Age: 76 Year
  Sex: Male

DRUGS (5)
  1. CIALIS [Suspect]
     Dosage: 20 MG, UNK
     Route: 048
     Dates: start: 20061001
  2. ZOCOR [Concomitant]
  3. GLUCOSAMINE [Concomitant]
  4. QUININE SULFATE [Concomitant]
  5. VIT C [Concomitant]

REACTIONS (4)
  - DRUG INEFFECTIVE [None]
  - PHARYNGOLARYNGEAL PAIN [None]
  - SWOLLEN TONGUE [None]
  - THROAT TIGHTNESS [None]
